FAERS Safety Report 5335471-X (Version None)
Quarter: 2007Q2

REPORT INFORMATION
  Report Type: 
  Country: None (occurrence: None)
  Receive Date: 20070525
  Receipt Date: 20070517
  Transmission Date: 20071010
  Serious: Yes (Other)
  Sender: FDA-Public Use
  Company Number: US-PFIZER INC-2007040362

PATIENT
  Sex: Male
  Weight: 83.9 kg

DRUGS (3)
  1. LIPITOR [Suspect]
     Indication: BLOOD CHOLESTEROL INCREASED
  2. ALTACE [Concomitant]
  3. PREVACID [Concomitant]

REACTIONS (2)
  - HIP ARTHROPLASTY [None]
  - MYALGIA [None]
